FAERS Safety Report 15664240 (Version 1)
Quarter: 2018Q4

REPORT INFORMATION
  Report Type: Other
  Country: FR (occurrence: FR)
  Receive Date: 20181128
  Receipt Date: 20181128
  Transmission Date: 20190205
  Serious: Yes (Hospitalization, Other)
  Sender: FDA-Public Use
  Company Number: FR-APOTEX-2018AP025647

PATIENT
  Age: 78 Year
  Sex: Male

DRUGS (2)
  1. DEROXAT [Suspect]
     Active Substance: PAROXETINE HYDROCHLORIDE
     Indication: ANXIETY
     Dosage: 20 MG, QD
     Route: 048
     Dates: end: 20180905
  2. PREVISCAN                          /00261401/ [Interacting]
     Active Substance: PENTOXIFYLLINE
     Indication: ATRIAL FIBRILLATION
     Dosage: 10 MG, QD
     Route: 048
     Dates: end: 20180905

REACTIONS (3)
  - Subcutaneous haematoma [Recovered/Resolved]
  - International normalised ratio increased [Recovered/Resolved]
  - Retroperitoneal haematoma [Recovered/Resolved]

NARRATIVE: CASE EVENT DATE: 20180904
